FAERS Safety Report 8165110-4 (Version None)
Quarter: 2012Q1

REPORT INFORMATION
  Report Type: 
  Country: None (occurrence: None)
  Receive Date: 20120227
  Receipt Date: 20120222
  Transmission Date: 20120608
  Serious: No
  Sender: FDA-Public Use
  Company Number: US-PFIZER INC-2012049139

PATIENT
  Sex: Female
  Weight: 98.866 kg

DRUGS (3)
  1. LYRICA [Suspect]
     Indication: SYSTEMIC LUPUS ERYTHEMATOSUS
  2. LYRICA [Suspect]
     Indication: FIBROMYALGIA
     Dosage: 175 MG, DAILY AT NIGHT
     Route: 048
     Dates: start: 20110101
  3. CYMBALTA [Concomitant]
     Dosage: UNK

REACTIONS (1)
  - BLOOD POTASSIUM DECREASED [None]
